FAERS Safety Report 23286066 (Version 2)
Quarter: 2024Q1

REPORT INFORMATION
  Report Type: Spontaneous
  Country: US (occurrence: None)
  Receive Date: 20231212
  Receipt Date: 20240116
  Transmission Date: 20240410
  Serious: Yes (Hospitalization, Other)
  Sender: FDA-Public Use
  Company Number: 2023A275205

PATIENT
  Age: 87 Year

DRUGS (1)
  1. SYMBICORT [Suspect]
     Active Substance: BUDESONIDE\FORMOTEROL FUMARATE DIHYDRATE
     Dosage: 160 UG/INHAL, UNKNOWN;160/4.5 MG 120 DOSE UNKNOWN
     Route: 055

REACTIONS (5)
  - Pneumonia [Unknown]
  - Device defective [Unknown]
  - Malaise [Unknown]
  - Drug delivery system issue [Unknown]
  - Wrong technique in device usage process [Unknown]

NARRATIVE: CASE EVENT DATE: 20230101
